FAERS Safety Report 7203084-0 (Version None)
Quarter: 2010Q4

REPORT INFORMATION
  Report Type: 
  Country: None (occurrence: None)
  Receive Date: 20101229
  Receipt Date: 20101222
  Transmission Date: 20110411
  Serious: Yes (Death)
  Sender: FDA-Public Use
  Company Number: IT-CELGENEUS-083-50794-10122842

PATIENT
  Age: 75 Year

DRUGS (1)
  1. VIDAZA [Suspect]
     Route: 050
     Dates: start: 20100601, end: 20100701

REACTIONS (1)
  - DEATH [None]
